FAERS Safety Report 16538379 (Version 1)
Quarter: 2019Q3

REPORT INFORMATION
  Report Type: Spontaneous
  Country: ZA (occurrence: ZA)
  Receive Date: 20190708
  Receipt Date: 20190708
  Transmission Date: 20191004
  Serious: Yes (Hospitalization)
  Sender: FDA-Public Use
  Company Number: ZA-GLAXOSMITHKLINE-ZA2019GSK117493

PATIENT
  Sex: Male

DRUGS (3)
  1. AVAMYS [Suspect]
     Active Substance: FLUTICASONE FUROATE
     Indication: MULTIPLE ALLERGIES
     Dosage: 27 UNK, UNK
  2. DAZIT [Suspect]
     Active Substance: DESLORATADINE
     Indication: MULTIPLE ALLERGIES
     Dosage: 5 MG, UNK
     Route: 048
  3. NEXIAM [Suspect]
     Active Substance: ESOMEPRAZOLE
     Indication: ULCER
     Dosage: 20 MG, UNK
     Route: 048

REACTIONS (1)
  - Surgery [Unknown]
